FAERS Safety Report 9437691 (Version 1)
Quarter: 2013Q3

REPORT INFORMATION
  Report Type: Spontaneous
  Country: FR (occurrence: FR)
  Receive Date: 20130802
  Receipt Date: 20130802
  Transmission Date: 20140515
  Serious: Yes (Other)
  Sender: FDA-Public Use
  Company Number: FR-B.I. PHARMACEUTICALS,INC./RIDGEFIELD-2013-FF-02039FF

PATIENT
  Sex: Female

DRUGS (2)
  1. SIFROL [Suspect]
     Dosage: 2.8 MG
     Route: 048
     Dates: start: 200807
  2. REQUIP [Suspect]
     Indication: PARKINSON^S DISEASE
     Dates: start: 2006, end: 2008

REACTIONS (2)
  - Feeding disorder [Not Recovered/Not Resolved]
  - Grandiosity [Not Recovered/Not Resolved]
